FAERS Safety Report 5735855-1 (Version None)
Quarter: 2008Q2

REPORT INFORMATION
  Report Type: 
  Country: None (occurrence: None)
  Receive Date: 20080513
  Receipt Date: 20080430
  Transmission Date: 20081010
  Serious: Yes (Other)
  Sender: FDA-Public Use
  Company Number: JP-ELI_LILLY_AND_COMPANY-JP200805000001

PATIENT
  Age: 70 Year
  Sex: Female

DRUGS (1)
  1. GEMZAR [Suspect]
     Dosage: UNK, OTHER
     Route: 042

REACTIONS (2)
  - COMPUTERISED TOMOGRAM ABNORMAL [None]
  - INTERSTITIAL LUNG DISEASE [None]
